FAERS Safety Report 9639432 (Version 5)
Quarter: 2014Q1

REPORT INFORMATION
  Report Type: Report from Study
  Country: GB (occurrence: GB)
  Receive Date: 20131022
  Receipt Date: 20140307
  Transmission Date: 20141002
  Serious: Yes (Life-Threatening, Hospitalization)
  Sender: FDA-Public Use
  Company Number: GB-ROCHE-1290022

PATIENT
  Age: 76 Year
  Sex: Female
  Weight: 69.8 kg

DRUGS (9)
  1. RITUXIMAB [Suspect]
     Indication: B-CELL LYMPHOMA
     Route: 042
     Dates: start: 20130122, end: 20130807
  2. FLUDARABINE [Suspect]
     Indication: B-CELL LYMPHOMA
     Route: 048
     Dates: start: 20130122, end: 20130125
  3. FLUDARABINE [Suspect]
     Route: 048
     Dates: start: 20130418, end: 20130421
  4. FLUDARABINE [Suspect]
     Route: 048
     Dates: start: 20130221, end: 20130224
  5. FLUDARABINE [Suspect]
     Route: 048
     Dates: start: 20130321, end: 20130324
  6. CYCLOPHOSPHAMIDE [Suspect]
     Indication: B-CELL LYMPHOMA
     Route: 048
     Dates: start: 20130122, end: 20130125
  7. CYCLOPHOSPHAMIDE [Suspect]
     Route: 048
     Dates: start: 20130418, end: 20130421
  8. CYCLOPHOSPHAMIDE [Suspect]
     Route: 048
     Dates: start: 20130221, end: 20130224
  9. CYCLOPHOSPHAMIDE [Suspect]
     Route: 048
     Dates: start: 20130321, end: 20130324

REACTIONS (2)
  - Pulmonary mass [Not Recovered/Not Resolved]
  - Lung neoplasm malignant [Recovered/Resolved with Sequelae]
